FAERS Safety Report 7294368-9 (Version None)
Quarter: 2011Q1

REPORT INFORMATION
  Report Type: 
  Country: None (occurrence: None)
  Receive Date: 20110215
  Receipt Date: 20110127
  Transmission Date: 20110831
  Serious: Yes (Other)
  Sender: FDA-Public Use
  Company Number: US-B.I. PHARMACEUTICALS,INC./RIDGEFIELD-2011-BP-02732BP

PATIENT
  Age: 46 Year
  Sex: Female

DRUGS (4)
  1. ASPIRIN [Concomitant]
     Dosage: 81 MG
  2. LEVOTHYROXINE SODIUM [Concomitant]
     Indication: THYROID DISORDER
  3. SOTALOL HCL [Concomitant]
     Indication: ATRIAL FIBRILLATION
  4. PRADAXA [Suspect]
     Indication: ATRIAL FIBRILLATION
     Dosage: 150 MG
     Route: 048
     Dates: start: 20110125, end: 20110125

REACTIONS (1)
  - ANAPHYLACTIC REACTION [None]
